FAERS Safety Report 26072003 (Version 1)
Quarter: 2025Q4

REPORT INFORMATION
  Report Type: Spontaneous
  Country: JP (occurrence: JP)
  Receive Date: 20251120
  Receipt Date: 20251120
  Transmission Date: 20260118
  Serious: Yes (Other)
  Sender: NOVARTIS
  Company Number: JP-002147023-NVSJ2025JP011050

PATIENT
  Age: 80 Year
  Sex: Female

DRUGS (1)
  1. CYCLOSPORINE [Suspect]
     Active Substance: CYCLOSPORINE
     Indication: Aplasia pure red cell
     Dosage: UNK
     Route: 065

REACTIONS (2)
  - Protein urine present [Unknown]
  - Blood creatinine increased [Unknown]
